FAERS Safety Report 4718080-2 (Version None)
Quarter: 2005Q3

REPORT INFORMATION
  Report Type: 
  Country: None (occurrence: None)
  Receive Date: 20050718
  Receipt Date: 20050718
  Transmission Date: 20060218
  Serious: Yes (Hospitalization)
  Sender: FDA-Public Use
  Company Number: None

PATIENT
  Age: 61 Year
  Sex: Male
  Weight: 102.0593 kg

DRUGS (2)
  1. CEFEPIME   1GM [Suspect]
     Indication: PNEUMONIA
     Dosage: 1GM  Q12H   INTRAVENOU
     Route: 042
     Dates: start: 20050706, end: 20050715
  2. TOBRAMYCIN [Suspect]
     Indication: PNEUMONIA
     Dosage: 420 MG    DAILY   INTRAVENOU
     Route: 042
     Dates: start: 20050708, end: 20050713

REACTIONS (1)
  - DIARRHOEA [None]
